FAERS Safety Report 5598154-7 (Version None)
Quarter: 2008Q1

REPORT INFORMATION
  Report Type: 
  Country: None (occurrence: None)
  Receive Date: 20080122
  Receipt Date: 20071127
  Transmission Date: 20080703
  Serious: Yes (Hospitalization, Other)
  Sender: FDA-Public Use
  Company Number: IL-BAYER-200810222GPV

PATIENT
  Age: 19 Year
  Sex: Male

DRUGS (1)
  1. ASPIRIN [Suspect]
     Indication: PYREXIA

REACTIONS (3)
  - ABDOMINAL PAIN UPPER [None]
  - JAUNDICE ACHOLURIC [None]
  - OCULAR ICTERUS [None]
